FAERS Safety Report 24416197 (Version 1)
Quarter: 2024Q4

REPORT INFORMATION
  Report Type: Spontaneous
  Country: US (occurrence: US)
  Receive Date: 20241009
  Receipt Date: 20241009
  Transmission Date: 20250115
  Serious: No
  Sender: ABBVIE
  Company Number: US-ABBVIE-5947467

PATIENT
  Age: 75 Year
  Weight: 95 kg

DRUGS (3)
  1. BLEPHAMIDE [Suspect]
     Active Substance: PREDNISOLONE ACETATE\SULFACETAMIDE SODIUM
     Indication: Prophylaxis
     Dosage: FORM STRENGTH-5 MILLILITER?OPHTHALMIC SUSPENSION
     Route: 047
     Dates: start: 2022
  2. SYSTANE COMPLETE [Concomitant]
     Active Substance: PROPYLENE GLYCOL
     Indication: Prophylaxis
  3. MOXIFLOXACIN [Concomitant]
     Active Substance: MOXIFLOXACIN
     Indication: Prophylaxis

REACTIONS (3)
  - Eye swelling [Recovering/Resolving]
  - Eye pain [Recovered/Resolved]
  - Visual impairment [Recovered/Resolved]

NARRATIVE: CASE EVENT DATE: 20240927
